FAERS Safety Report 25870798 (Version 1)
Quarter: 2025Q4

REPORT INFORMATION
  Report Type: Spontaneous
  Country: US (occurrence: US)
  Receive Date: 20251001
  Receipt Date: 20251001
  Transmission Date: 20260118
  Serious: Yes (Other)
  Sender: NOVO NORDISK
  Company Number: US-NOVOPROD-1522916

PATIENT
  Sex: Female

DRUGS (2)
  1. NOVOLOG [Suspect]
     Active Substance: INSULIN ASPART
     Indication: Product used for unknown indication
     Dosage: UNK
  2. TRESIBA [Suspect]
     Active Substance: INSULIN DEGLUDEC
     Indication: Product used for unknown indication
     Dosage: UNK

REACTIONS (6)
  - Herpes zoster [Recovered/Resolved]
  - Nerve injury [Recovered/Resolved]
  - Hip deformity [Unknown]
  - Thyroid cancer [Not Recovered/Not Resolved]
  - Exposure to radiation [Unknown]
  - Specialist consultation [Unknown]

NARRATIVE: CASE EVENT DATE: 20060101
